FAERS Safety Report 9772146 (Version 1)
Quarter: 2013Q4

REPORT INFORMATION
  Report Type: Spontaneous
  Country: US (occurrence: US)
  Receive Date: 20131219
  Receipt Date: 20131219
  Transmission Date: 20140711
  Serious: Yes (Hospitalization)
  Sender: FDA-Public Use
  Company Number: US-MYLANLABS-2013S1027692

PATIENT
  Sex: Female

DRUGS (2)
  1. LEVOTHYROXINE SODIUM TABLETS, USP [Suspect]
     Indication: HYPOTHYROIDISM
     Route: 048
  2. LEVOTHYROXINE SODIUM TABLETS, USP [Suspect]
     Indication: HYPOTHYROIDISM
     Route: 048

REACTIONS (3)
  - Blood thyroid stimulating hormone increased [Not Recovered/Not Resolved]
  - Thyroxine free decreased [Not Recovered/Not Resolved]
  - Therapeutic response unexpected with drug substitution [Not Recovered/Not Resolved]
